FAERS Safety Report 10362871 (Version 1)
Quarter: 2014Q3

REPORT INFORMATION
  Report Type: Spontaneous
  Country: GB (occurrence: None)
  Receive Date: 20140731
  Receipt Date: 20140731
  Transmission Date: 20150326
  Serious: Yes (Other)
  Sender: FDA-Public Use
  Company Number: AUR-APL-2014-08047

PATIENT
  Sex: Male

DRUGS (1)
  1. MIRTAZAPINE FILM-COATED TABLETS 30MG (MIRTAZAPINE) FILM-COATED TABLET, 30MG [Suspect]
     Active Substance: MIRTAZAPINE

REACTIONS (4)
  - Road traffic accident [None]
  - Visual acuity reduced [None]
  - Depressed mood [None]
  - Mental status changes [None]
